FAERS Safety Report 23713731 (Version 1)
Quarter: 2024Q2

REPORT INFORMATION
  Report Type: Spontaneous
  Country: GB (occurrence: GB)
  Receive Date: 20240405
  Receipt Date: 20240405
  Transmission Date: 20240716
  Serious: Yes (Other)
  Sender: FDA-Public Use
  Company Number: GB-GLAXOSMITHKLINE-GB2024GSK040917

PATIENT

DRUGS (3)
  1. LAMOTRIGINE [Suspect]
     Active Substance: LAMOTRIGINE
     Indication: Epilepsy
     Dosage: 400 MG, QD
  2. LAMOTRIGINE [Suspect]
     Active Substance: LAMOTRIGINE
     Dosage: 50 MG, QD
  3. LEVETIRACETAM [Concomitant]
     Active Substance: LEVETIRACETAM
     Indication: Epilepsy
     Dosage: 1000 MG, QD

REACTIONS (7)
  - Toxic optic neuropathy [Recovering/Resolving]
  - Blindness [Recovered/Resolved]
  - Optic disc haemorrhage [Recovering/Resolving]
  - Visual field defect [Recovering/Resolving]
  - Nystagmus [Recovering/Resolving]
  - Retinal disorder [Recovering/Resolving]
  - Treatment noncompliance [Unknown]
